FAERS Safety Report 6308808-2 (Version None)
Quarter: 2009Q3

REPORT INFORMATION
  Report Type: 
  Country: None (occurrence: None)
  Receive Date: 20090813
  Receipt Date: 20080926
  Transmission Date: 20100115
  Serious: No
  Sender: FDA-Public Use
  Company Number: US-ALLERGAN-0812098US

PATIENT
  Age: 61 Year
  Sex: Male

DRUGS (7)
  1. COMBIGAN [Suspect]
     Indication: GLAUCOMA
     Dosage: UNK, UNKNOWN
     Route: 047
     Dates: start: 20080925
  2. LUMIGAN [Concomitant]
     Dosage: FEW YEARS
  3. TOPROL-XL [Concomitant]
  4. LISINOPRIL [Concomitant]
  5. TRICOR [Concomitant]
  6. ZOCOR [Concomitant]
  7. LEVOBUNOLOL HYDROCHLORIDE [Concomitant]

REACTIONS (2)
  - PRURITUS GENERALISED [None]
  - RASH GENERALISED [None]
